FAERS Safety Report 5621752-9 (Version None)
Quarter: 2008Q1

REPORT INFORMATION
  Report Type: 
  Country: None (occurrence: None)
  Receive Date: 20080211
  Receipt Date: 20080201
  Transmission Date: 20080703
  Serious: Yes (Other)
  Sender: FDA-Public Use
  Company Number: PHHY2008JP01025

PATIENT
  Age: 55 Year
  Sex: Male

DRUGS (4)
  1. BACCIDAL [Concomitant]
     Dosage: 300 MG UNK
     Route: 048
     Dates: start: 20080107, end: 20080114
  2. FLOMOX [Concomitant]
     Dosage: 300 MG UNK
     Route: 048
  3. DEPAKENE [Concomitant]
     Dosage: 2 ML
     Route: 048
     Dates: start: 20050901
  4. LUDIOMIL [Suspect]
     Indication: SCHIZOPHRENIA
     Dosage: 20 MG/DAY
     Route: 048
     Dates: start: 20050901, end: 20080125

REACTIONS (1)
  - LOSS OF CONSCIOUSNESS [None]
